FAERS Safety Report 7774960-5 (Version None)
Quarter: 2011Q3

REPORT INFORMATION
  Report Type: 
  Country: None (occurrence: None)
  Receive Date: 20110923
  Receipt Date: 20110919
  Transmission Date: 20111222
  Serious: Yes (Death, Other)
  Sender: FDA-Public Use
  Company Number: PHHY2011ES83633

PATIENT
  Age: 78 Year
  Sex: Female

DRUGS (4)
  1. PREDNISONE [Suspect]
     Indication: HODGKIN'S DISEASE
     Dosage: 40 MG/M2 PER DAY
  2. CYCLOPHOSPHAMIDE [Concomitant]
     Indication: HODGKIN'S DISEASE
  3. PROCARBAZINE HYDROCHLORIDE [Concomitant]
     Indication: HODGKIN'S DISEASE
  4. VINCRISTINE [Concomitant]
     Indication: HODGKIN'S DISEASE

REACTIONS (16)
  - COAGULOPATHY [None]
  - SEPTIC SHOCK [None]
  - MULTI-ORGAN FAILURE [None]
  - METABOLIC ACIDOSIS [None]
  - RENAL FAILURE ACUTE [None]
  - HYPOTENSION [None]
  - DIARRHOEA [None]
  - RHABDOMYOLYSIS [None]
  - ANURIA [None]
  - GENERAL PHYSICAL HEALTH DETERIORATION [None]
  - GASTROINTESTINAL DISORDER [None]
  - DIABETIC KETOACIDOSIS [None]
  - SEPSIS [None]
  - VOMITING [None]
  - DEPRESSED LEVEL OF CONSCIOUSNESS [None]
  - NEUTROPENIA [None]
